FAERS Safety Report 20835539 (Version 1)
Quarter: 2022Q2

REPORT INFORMATION
  Report Type: Spontaneous
  Country: US (occurrence: US)
  Receive Date: 20220516
  Receipt Date: 20220516
  Transmission Date: 20220721
  Serious: No
  Sender: FDA-Public Use
  Company Number: US-SANOFI-01099165

PATIENT
  Sex: Female

DRUGS (1)
  1. TOUJEO [Suspect]
     Active Substance: INSULIN GLARGINE
     Dosage: 20 UNITS, 80 UNITS DRUG INTERVAL DOSAGE : IN THE MORNING, IN THE EVENING

REACTIONS (1)
  - Inappropriate schedule of product administration [Unknown]
